FAERS Safety Report 5168786-9 (Version None)
Quarter: 2006Q4

REPORT INFORMATION
  Report Type: 
  Country: None (occurrence: None)
  Receive Date: 20061211
  Receipt Date: 20061130
  Transmission Date: 20070319
  Serious: Yes (Hospitalization)
  Sender: FDA-Public Use
  Company Number: US-AMGEN-US201906

PATIENT
  Sex: Female

DRUGS (5)
  1. NEUPOGEN [Suspect]
     Indication: AGRANULOCYTOSIS
     Dates: start: 20030101
  2. PRILOSEC [Concomitant]
     Route: 065
  3. ESTRACE [Concomitant]
     Route: 065
  4. PROMETRIUM [Concomitant]
     Route: 065
  5. VALTREX [Concomitant]
     Route: 065

REACTIONS (9)
  - ALOPECIA [None]
  - BONE PAIN [None]
  - DIVERTICULITIS [None]
  - DYSPNOEA [None]
  - FATIGUE [None]
  - HYPOTRICHOSIS [None]
  - NIGHT SWEATS [None]
  - PRURITUS [None]
  - RASH [None]
